FAERS Safety Report 15945113 (Version 2)
Quarter: 2019Q1

REPORT INFORMATION
  Report Type: Spontaneous
  Country: IN (occurrence: IN)
  Receive Date: 20190211
  Receipt Date: 20190307
  Transmission Date: 20190417
  Serious: Yes (Hospitalization, Other)
  Sender: FDA-Public Use
  Company Number: IN-SA-2019SA034845

PATIENT
  Age: 24 Year
  Sex: Female

DRUGS (20)
  1. DEXAMETHASONE SALT NOT SPECIFIED [Suspect]
     Active Substance: DEXAMETHASONE
     Indication: VASCULITIS
  2. RIFAMPICIN [Suspect]
     Active Substance: RIFAMPIN
     Indication: MENINGITIS TUBERCULOUS
     Dosage: 450 MG, CAPSULE
  3. ISONIAZID. [Suspect]
     Active Substance: ISONIAZID
     Indication: VASCULITIS
  4. VALGANCICLOVIR HYDROCHLORIDE. [Suspect]
     Active Substance: VALGANCICLOVIR HYDROCHLORIDE
     Indication: CYTOMEGALOVIRUS GASTRITIS
     Dosage: 900 MG, QD
  5. VALGANCICLOVIR HYDROCHLORIDE. [Suspect]
     Active Substance: VALGANCICLOVIR HYDROCHLORIDE
     Dosage: 900 UNK
     Route: 048
  6. MANNITOL. [Concomitant]
     Active Substance: MANNITOL
     Indication: VASCULITIS
  7. ETHAMBUTOL [Suspect]
     Active Substance: ETHAMBUTOL HYDROCHLORIDE
     Indication: MENINGITIS TUBERCULOUS
     Dosage: 800 MG
  8. PYRAZINAMIDE. [Suspect]
     Active Substance: PYRAZINAMIDE
     Indication: MENINGITIS TUBERCULOUS
     Dosage: 750 MG, ORAL POWDER
  9. RIFAMPICIN [Suspect]
     Active Substance: RIFAMPIN
     Indication: VASCULITIS
  10. PHENYTOIN. [Suspect]
     Active Substance: PHENYTOIN
     Indication: EPILEPSY
     Dosage: 200 MG
  11. LEVETIRACETAM. [Concomitant]
     Active Substance: LEVETIRACETAM
     Indication: MENINGITIS TUBERCULOUS
     Route: 042
  12. LEVETIRACETAM. [Concomitant]
     Active Substance: LEVETIRACETAM
     Indication: VASCULITIS
  13. DEXAMETHASONE SALT NOT SPECIFIED [Suspect]
     Active Substance: DEXAMETHASONE
     Indication: MENINGITIS TUBERCULOUS
     Dosage: TAPER DOSE
  14. ISONIAZID. [Suspect]
     Active Substance: ISONIAZID
     Indication: MENINGITIS TUBERCULOUS
     Dosage: 300 MG, TABLET
  15. LEVOFLOXACIN. [Concomitant]
     Active Substance: LEVOFLOXACIN
     Indication: MENINGITIS TUBERCULOUS
     Dosage: 750 MG, TABLET
  16. STREPTOMYCIN [Suspect]
     Active Substance: STREPTOMYCIN\STREPTOMYCIN SULFATE
     Dosage: 1 G
  17. FLUCONAZOLE. [Concomitant]
     Active Substance: FLUCONAZOLE
     Indication: ORAL CANDIDIASIS
     Route: 048
  18. ETHAMBUTOL [Suspect]
     Active Substance: ETHAMBUTOL HYDROCHLORIDE
     Indication: VASCULITIS
  19. PYRAZINAMIDE. [Suspect]
     Active Substance: PYRAZINAMIDE
     Indication: VASCULITIS
  20. MANNITOL. [Concomitant]
     Active Substance: MANNITOL
     Indication: MENINGITIS TUBERCULOUS
     Route: 042

REACTIONS (15)
  - Vomiting [Recovering/Resolving]
  - Myalgia [Recovering/Resolving]
  - Pyrexia [Recovering/Resolving]
  - Abdominal pain upper [Recovered/Resolved]
  - Cytomegalovirus gastrointestinal ulcer [Recovering/Resolving]
  - Diarrhoea [Recovering/Resolving]
  - Gastritis [Recovered/Resolved]
  - Oesophageal candidiasis [Recovering/Resolving]
  - Incorrect dose administered [Recovered/Resolved]
  - Dysphagia [Recovering/Resolving]
  - Cytomegalovirus infection [Recovering/Resolving]
  - Skin lesion [Recovered/Resolved]
  - Drug-induced liver injury [Recovering/Resolving]
  - Oral candidiasis [Recovering/Resolving]
  - Gastric ulcer [Recovered/Resolved]
